FAERS Safety Report 6392101-6 (Version None)
Quarter: 2009Q4

REPORT INFORMATION
  Report Type: 
  Country: None (occurrence: None)
  Receive Date: 20091007
  Receipt Date: 20091001
  Transmission Date: 20100525
  Serious: No
  Sender: FDA-Public Use
  Company Number: US-MERCK-0901USA00821

PATIENT
  Age: 39 Year
  Sex: Female

DRUGS (29)
  1. MAXALT [Suspect]
     Indication: MIGRAINE
     Route: 048
  2. MAXALT [Suspect]
     Route: 048
     Dates: start: 20081031
  3. MAXALT [Suspect]
     Route: 048
     Dates: start: 20081101
  4. MAXALT [Suspect]
     Route: 048
     Dates: start: 20081105
  5. MAXALT [Suspect]
     Route: 048
     Dates: start: 20081108
  6. MAXALT [Suspect]
     Route: 048
     Dates: start: 20081110
  7. MAXALT [Suspect]
     Route: 048
     Dates: start: 20081112
  8. MAXALT [Suspect]
     Route: 048
     Dates: start: 20081113
  9. MAXALT [Suspect]
     Route: 048
     Dates: start: 20081116
  10. MAXALT [Suspect]
     Route: 048
     Dates: start: 20081121
  11. MAXALT [Suspect]
     Route: 048
     Dates: start: 20081123
  12. MAXALT [Suspect]
     Route: 048
     Dates: start: 20081125
  13. MAXALT [Suspect]
     Route: 048
     Dates: start: 20081126
  14. MAXALT [Suspect]
     Route: 048
     Dates: start: 20081129
  15. MAXALT [Suspect]
     Route: 048
     Dates: start: 20081202
  16. MAXALT [Suspect]
     Route: 048
     Dates: start: 20081204
  17. MAXALT [Suspect]
     Route: 048
     Dates: start: 20081206
  18. MAXALT [Suspect]
     Route: 048
     Dates: start: 20081209
  19. MAXALT [Suspect]
     Route: 048
     Dates: start: 20081210
  20. MAXALT [Suspect]
     Route: 048
     Dates: start: 20081213
  21. MAXALT [Suspect]
     Route: 048
     Dates: start: 20081215
  22. MAXALT [Suspect]
     Route: 048
     Dates: start: 20081219
  23. MAXALT [Suspect]
     Route: 048
     Dates: start: 20081221
  24. MAXALT [Suspect]
     Route: 048
     Dates: start: 20090601
  25. RIBOFLAVIN [Concomitant]
     Route: 065
  26. MAGNESIUM (UNSPECIFIED) [Concomitant]
     Route: 065
  27. OS-CAL [Concomitant]
     Route: 065
  28. OMEGA-3 MARINE TRIGLYCERIDES [Concomitant]
     Route: 065
  29. VITAMINS (UNSPECIFIED) [Concomitant]
     Route: 065

REACTIONS (4)
  - CAESAREAN SECTION [None]
  - DRUG EXPOSURE DURING PREGNANCY [None]
  - NO ADVERSE EVENT [None]
  - PREGNANCY [None]
